FAERS Safety Report 17711295 (Version 1)
Quarter: 2020Q2

REPORT INFORMATION
  Report Type: Spontaneous
  Country: US (occurrence: US)
  Receive Date: 20200424
  Receipt Date: 20200424
  Transmission Date: 20200714
  Serious: Yes (Disabling)
  Sender: FDA-Public Use
  Company Number: None

PATIENT
  Age: 46 Year
  Sex: Female
  Weight: 49.5 kg

DRUGS (2)
  1. HALDOL [Suspect]
     Active Substance: HALOPERIDOL
     Indication: CONFUSIONAL STATE
     Dosage: ?          QUANTITY:3 MG;OTHER FREQUENCY:ONE DOSE;?
     Route: 042
     Dates: start: 20200422, end: 20200422
  2. HALDOL [Suspect]
     Active Substance: HALOPERIDOL
     Indication: MUSCLE SPASMS
     Dosage: ?          QUANTITY:3 MG;OTHER FREQUENCY:ONE DOSE;?
     Route: 042
     Dates: start: 20200422, end: 20200422

REACTIONS (8)
  - Palpitations [None]
  - Dyspnoea [None]
  - Heart rate increased [None]
  - Somnolence [None]
  - Muscle spasms [None]
  - Tremor [None]
  - Akathisia [None]
  - Speech disorder [None]

NARRATIVE: CASE EVENT DATE: 20200422
